FAERS Safety Report 10865906 (Version 1)
Quarter: 2015Q1

REPORT INFORMATION
  Report Type: Report from Study
  Country: US (occurrence: US)
  Receive Date: 20150224
  Receipt Date: 20150224
  Transmission Date: 20150721
  Serious: Yes (Other)
  Sender: FDA-Public Use
  Company Number: US-BAYER-2015-024662

PATIENT
  Age: 63 Year
  Sex: Male

DRUGS (1)
  1. NEXAVAR [Suspect]
     Active Substance: SORAFENIB
     Indication: HEPATIC CANCER
     Dosage: 400 MG, BID
     Route: 048
     Dates: start: 20150114, end: 20150213

REACTIONS (4)
  - Localised oedema [Recovered/Resolved]
  - Eye swelling [Recovered/Resolved]
  - Blindness transient [Recovered/Resolved]
  - Aphasia [Recovered/Resolved]
